FAERS Safety Report 17391427 (Version 1)
Quarter: 2020Q1

REPORT INFORMATION
  Report Type: Spontaneous
  Country: US (occurrence: US)
  Receive Date: 20200207
  Receipt Date: 20200207
  Transmission Date: 20200409
  Serious: No
  Sender: FDA-Public Use
  Company Number: US-EMD SERONO-9143738

PATIENT
  Sex: Female

DRUGS (2)
  1. REBIF [Suspect]
     Active Substance: INTERFERON BETA-1A
     Dosage: 0.5 ML
     Route: 058
  2. REBIF [Suspect]
     Active Substance: INTERFERON BETA-1A
     Indication: MULTIPLE SCLEROSIS
     Dosage: UNKNOWN DOSE
     Dates: start: 20191021

REACTIONS (5)
  - Peripheral swelling [Unknown]
  - Contusion [Unknown]
  - Feeling of body temperature change [Unknown]
  - Swelling face [Unknown]
  - Headache [Unknown]
